FAERS Safety Report 14702676 (Version 3)
Quarter: 2018Q2

REPORT INFORMATION
  Report Type: Report from Study
  Country: AR (occurrence: AR)
  Receive Date: 20180402
  Receipt Date: 20180426
  Transmission Date: 20180711
  Serious: Yes (Hospitalization)
  Sender: FDA-Public Use
  Company Number: AR-ROCHE-2094045

PATIENT
  Age: 69 Year
  Sex: Male

DRUGS (2)
  1. ERIVEDGE [Suspect]
     Active Substance: VISMODEGIB
     Indication: BASAL CELL CARCINOMA
     Dosage: DOSE AND FREQUENCY UNKNOWN
     Route: 048
     Dates: start: 20171128, end: 20180305
  2. ERIVEDGE [Suspect]
     Active Substance: VISMODEGIB
     Dosage: DOSE AND FREQUENCY UNKNOWN
     Route: 048
     Dates: start: 20180419

REACTIONS (3)
  - Dehydration [Recovered/Resolved]
  - Ageusia [Recovered/Resolved]
  - Decreased appetite [Recovered/Resolved]

NARRATIVE: CASE EVENT DATE: 20180310
